FAERS Safety Report 5328974-5 (Version None)
Quarter: 2007Q2

REPORT INFORMATION
  Report Type: 
  Country: None (occurrence: None)
  Receive Date: 20070518
  Receipt Date: 20070509
  Transmission Date: 20071010
  Serious: Yes (Hospitalization)
  Sender: FDA-Public Use
  Company Number: ES-ASTRAZENECA-2007AC00870

PATIENT
  Age: 44 Year
  Sex: Male

DRUGS (2)
  1. RILAST TURBUHALER [Suspect]
     Dosage: 80/4.5 UG (FREQUENCY UNKNOWN)
     Route: 055
     Dates: start: 20060508
  2. NORVIR [Suspect]
     Route: 048
     Dates: start: 20060508

REACTIONS (1)
  - GLUCOCORTICOIDS INCREASED [None]
